FAERS Safety Report 4647055-7 (Version None)
Quarter: 2005Q2

REPORT INFORMATION
  Report Type: 
  Country: None (occurrence: None)
  Receive Date: 20050331
  Receipt Date: 20050202
  Transmission Date: 20051028
  Serious: No
  Sender: FDA-Public Use
  Company Number: 03P-0216778-00

PATIENT
  Age: 41 Year
  Sex: Female
  Weight: 54.4316 kg

DRUGS (12)
  1. HUMIRA [Suspect]
     Indication: RHEUMATOID ARTHRITIS
     Dosage: 40 MG, 1 IN 2 WK, SUBCUTANEOUS;  40 MG, 1 IN 1 WK, SUBCUTANEOUS
     Route: 058
     Dates: start: 20030101
  2. HUMIRA [Suspect]
     Indication: RHEUMATOID ARTHRITIS
     Dosage: 40 MG, 1 IN 2 WK, SUBCUTANEOUS;  40 MG, 1 IN 1 WK, SUBCUTANEOUS
     Route: 058
     Dates: start: 20030416
  3. PREDNISONE TAB [Concomitant]
  4. NABUMETONE [Concomitant]
  5. PANTOPRAZOLE SODIUM [Concomitant]
  6. METAXALONE [Concomitant]
  7. VICODIN [Concomitant]
  8. CETIRIZINE HCL [Concomitant]
  9. RISEDRONATE SODIUM [Concomitant]
  10. LOMOTIL [Concomitant]
  11. METHOTREXATE [Concomitant]
  12. ORPHENADRINE CITRATE [Concomitant]

REACTIONS (5)
  - FATIGUE [None]
  - HEPATIC ENZYME INCREASED [None]
  - INJECTION SITE IRRITATION [None]
  - PALPITATIONS [None]
  - RASH [None]
